FAERS Safety Report 12123684 (Version 1)
Quarter: 2016Q1

REPORT INFORMATION
  Report Type: Spontaneous
  Country: US (occurrence: None)
  Receive Date: 20160226
  Receipt Date: 20160226
  Transmission Date: 20160526
  Serious: Yes (Hospitalization, Disabling, Other)
  Sender: FDA-Public Use
  Company Number: None

PATIENT
  Age: 47 Year
  Sex: Female
  Weight: 81.65 kg

DRUGS (4)
  1. MELATONIN [Concomitant]
     Active Substance: MELATONIN
  2. BIO IDENTICAL HORMONE REPLACEMENT [Concomitant]
  3. MAGNEVIST [Suspect]
     Active Substance: GADOPENTETATE DIMEGLUMINE
     Indication: NUCLEAR MAGNETIC RESONANCE IMAGING
     Dates: start: 20100304
  4. MULTIVITAMIN [Concomitant]
     Active Substance: VITAMINS

REACTIONS (12)
  - Muscular weakness [None]
  - Feeling abnormal [None]
  - Burning sensation [None]
  - Skin disorder [None]
  - Injection site extravasation [None]
  - Pain [None]
  - Cerebral disorder [None]
  - Toxicity to various agents [None]
  - Skin tightness [None]
  - Fatigue [None]
  - Pain in extremity [None]
  - Unevaluable event [None]

NARRATIVE: CASE EVENT DATE: 20100304
